FAERS Safety Report 16133882 (Version 1)
Quarter: 2019Q1

REPORT INFORMATION
  Report Type: Spontaneous
  Country: US (occurrence: US)
  Receive Date: 20190329
  Receipt Date: 20190329
  Transmission Date: 20190418
  Serious: Yes (Other)
  Sender: FDA-Public Use
  Company Number: US-BAYER-2019-059931

PATIENT
  Age: 70 Year
  Sex: Female
  Weight: 77 kg

DRUGS (2)
  1. MIRALAX [Suspect]
     Active Substance: POLYETHYLENE GLYCOL 3350
     Indication: CONSTIPATION
     Dosage: 1 DF
     Dates: start: 20190324, end: 20190325
  2. MIRALAX [Suspect]
     Active Substance: POLYETHYLENE GLYCOL 3350
     Indication: CONSTIPATION
     Dosage: 1 DF, QD
     Route: 048
     Dates: start: 2017

REACTIONS (5)
  - Anorectal operation [None]
  - Off label use [Unknown]
  - Wrong technique in product usage process [None]
  - Product use in unapproved indication [Unknown]
  - Expired product administered [Recovered/Resolved]

NARRATIVE: CASE EVENT DATE: 2017
